FAERS Safety Report 5797104-8 (Version None)
Quarter: 2008Q2

REPORT INFORMATION
  Report Type: 
  Country: None (occurrence: None)
  Receive Date: 20080627
  Receipt Date: 20080613
  Transmission Date: 20081010
  Serious: Yes (Hospitalization)
  Sender: FDA-Public Use
  Company Number: 234427J08USA

PATIENT
  Age: 48 Year
  Sex: Female

DRUGS (4)
  1. REBIF [Suspect]
     Indication: MULTIPLE SCLEROSIS
     Dosage: 44 MCG, 3 IN 1 WEEKS, SUBCUTANEOUS
     Route: 058
     Dates: start: 20060914
  2. AMITRIPTLINE HYDROCHLORIDE TAB [Concomitant]
  3. ABILIFY [Concomitant]
  4. FOLIC ACID [Concomitant]

REACTIONS (6)
  - FATIGUE [None]
  - INJECTION SITE BRUISING [None]
  - INJECTION SITE REACTION [None]
  - INJECTION SITE URTICARIA [None]
  - MULTIPLE SCLEROSIS [None]
  - UVEITIS [None]
